FAERS Safety Report 23515322 (Version 1)
Quarter: 2024Q1

REPORT INFORMATION
  Report Type: Spontaneous
  Country: GB (occurrence: GB)
  Receive Date: 20240213
  Receipt Date: 20240213
  Transmission Date: 20240409
  Serious: Yes (Other)
  Sender: FDA-Public Use
  Company Number: GB-HALEON-GBCH2024HLN007697

PATIENT

DRUGS (1)
  1. DICLOFENAC [Suspect]
     Active Substance: DICLOFENAC
     Indication: Back pain
     Dosage: UNK

REACTIONS (4)
  - Intestinal diaphragm disease [Recovered/Resolved]
  - Ileal ulcer [Recovered/Resolved]
  - Iron deficiency anaemia [Recovered/Resolved]
  - Dyspnoea exertional [Recovered/Resolved]
